FAERS Safety Report 10020669 (Version 1)
Quarter: 2013Q4

REPORT INFORMATION
  Report Type: Spontaneous
  Country: US (occurrence: None)
  Receive Date: 20131125
  Receipt Date: 20131125
  Transmission Date: 20140711
  Serious: Yes (Hospitalization, Other)
  Sender: FDA-Public Use
  Company Number: ADR-2013-02107

PATIENT
  Sex: Female

DRUGS (3)
  1. BACLOFEN [Suspect]
     Indication: SPINAL PAIN
  2. FENTANYL [Suspect]
     Dosage: 1348 MCG/ML
  3. PRIALT [Suspect]

REACTIONS (5)
  - Device malfunction [None]
  - Mental status changes [None]
  - Platelet count decreased [None]
  - Elder abuse [None]
  - Decubitus ulcer [None]
